FAERS Safety Report 25553997 (Version 3)
Quarter: 2025Q4

REPORT INFORMATION
  Report Type: Spontaneous
  Country: GB (occurrence: GB)
  Receive Date: 20250715
  Receipt Date: 20251023
  Transmission Date: 20260118
  Serious: Yes (Hospitalization)
  Sender: RANBAXY
  Company Number: GB-002147023-NVSC2025GB067094

PATIENT
  Sex: Female

DRUGS (3)
  1. CITALOPRAM [Interacting]
     Active Substance: CITALOPRAM
     Indication: Product used for unknown indication
     Dosage: UNK
     Route: 065
  2. KESIMPTA [Interacting]
     Active Substance: OFATUMUMAB
     Indication: Relapsing-remitting multiple sclerosis
     Dosage: 20 MG, QW  PRE-FILLED SYRINGE
     Route: 058
     Dates: start: 20250422
  3. KESIMPTA [Interacting]
     Active Substance: OFATUMUMAB
     Indication: Multiple sclerosis
     Dosage: 20 MG, QW  PRE-FILLED SYRINGE
     Route: 065
     Dates: start: 20250622

REACTIONS (13)
  - Multiple sclerosis relapse [Recovering/Resolving]
  - Drug interaction [Recovering/Resolving]
  - Gait inability [Recovering/Resolving]
  - Muscular weakness [Recovering/Resolving]
  - Vomiting [Recovering/Resolving]
  - Dizziness [Recovering/Resolving]
  - Influenza like illness [Not Recovered/Not Resolved]
  - Pain [Not Recovered/Not Resolved]
  - Night sweats [Recovered/Resolved]
  - Headache [Not Recovered/Not Resolved]
  - Inappropriate schedule of product administration [Unknown]
  - Injection site mass [Unknown]
  - COVID-19 [Unknown]

NARRATIVE: CASE EVENT DATE: 20250520
